FAERS Safety Report 20043379 (Version 1)
Quarter: 2021Q4

REPORT INFORMATION
  Report Type: Spontaneous
  Country: IT (occurrence: IT)
  Receive Date: 20211108
  Receipt Date: 20211108
  Transmission Date: 20220304
  Serious: Yes (Hospitalization)
  Sender: FDA-Public Use
  Company Number: IT-NOVARTISPH-NVSC2021IT251795

PATIENT
  Age: 77 Year
  Sex: Female

DRUGS (1)
  1. HYDROCHLOROTHIAZIDE [Suspect]
     Active Substance: HYDROCHLOROTHIAZIDE
     Indication: Hypertension
     Dosage: 12.5 MG, QD
     Route: 048

REACTIONS (1)
  - Urine sodium decreased [Recovered/Resolved]

NARRATIVE: CASE EVENT DATE: 20210708
